FAERS Safety Report 9539630 (Version 1)
Quarter: 2013Q1

REPORT INFORMATION
  Report Type: Spontaneous
  Country: US (occurrence: None)
  Receive Date: 20130329
  Receipt Date: 20130329
  Transmission Date: 20140127
  Serious: Yes (Other)
  Sender: FDA-Public Use
  Company Number: 2012P1032535

PATIENT
  Age: 78 Year
  Sex: Female
  Weight: 47.17 kg

DRUGS (1)
  1. DICYCLOMINE HCL [Suspect]
     Indication: IRRITABLE BOWEL SYNDROME
     Dates: start: 201111

REACTIONS (1)
  - Amnesia [None]
